FAERS Safety Report 14893715 (Version 1)
Quarter: 2018Q2

REPORT INFORMATION
  Report Type: Spontaneous
  Country: AT (occurrence: AT)
  Receive Date: 20180514
  Receipt Date: 20180514
  Transmission Date: 20180711
  Serious: Yes (Other)
  Sender: FDA-Public Use
  Company Number: AT-MYLANLABS-2018M1031279

PATIENT
  Age: 82 Year
  Sex: Male

DRUGS (7)
  1. CLADRIBINE. [Suspect]
     Active Substance: CLADRIBINE
     Indication: HAIRY CELL LEUKAEMIA
     Dosage: 0.14 MG/KG, QD (DAYS 1-5)
     Route: 065
  2. OFATUMUMAB [Concomitant]
     Active Substance: OFATUMUMAB
     Dosage: 300 MG, QD  (DAY 1)
     Route: 065
  3. 2-CDA [Concomitant]
     Active Substance: CLADRIBINE
     Indication: HAIRY CELL LEUKAEMIA
     Dosage: UNK
     Route: 065
  4. RITUXIMAB. [Suspect]
     Active Substance: RITUXIMAB
     Indication: HAIRY CELL LEUKAEMIA
     Dosage: 375 MG/M2, UNK (DAY 1)
     Route: 042
  5. OFATUMUMAB [Concomitant]
     Active Substance: OFATUMUMAB
     Indication: HAIRY CELL LEUKAEMIA
     Dosage: 1000 MG, QD (DAY 8)
     Route: 065
  6. OFATUMUMAB [Concomitant]
     Active Substance: OFATUMUMAB
     Dosage: 2000 MG, QD  (DAY 22)
     Route: 065
  7. BENDAMUSTINE HYDROCHLORIDE. [Suspect]
     Active Substance: BENDAMUSTINE HYDROCHLORIDE
     Indication: HAIRY CELL LEUKAEMIA
     Dosage: 100 MG/M2, UNK (ON DAYS 1 AND 2
     Route: 065

REACTIONS (3)
  - Hairy cell leukaemia [Recovered/Resolved]
  - Therapy non-responder [Unknown]
  - Skin toxicity [Unknown]
